FAERS Safety Report 11059293 (Version 2)
Quarter: 2015Q2

REPORT INFORMATION
  Report Type: Spontaneous
  Country: US (occurrence: US)
  Receive Date: 20150423
  Receipt Date: 20150423
  Transmission Date: 20150821
  Serious: Yes (Death)
  Sender: FDA-Public Use
  Company Number: PHHY2015US046462

PATIENT
  Age: 46 Year
  Sex: Female

DRUGS (2)
  1. OKT3 [Suspect]
     Active Substance: MUROMONAB-CD3
     Route: 065
  2. CICLOSPORIN [Suspect]
     Active Substance: CYCLOSPORINE
     Indication: IMMUNOSUPPRESSION
     Route: 065

REACTIONS (6)
  - Death [Fatal]
  - Influenza like illness [Unknown]
  - Urinary tract infection [Unknown]
  - Lung infiltration [Unknown]
  - Diarrhoea [Unknown]
  - Sinus congestion [Unknown]
